FAERS Safety Report 16158647 (Version 1)
Quarter: 2019Q2

REPORT INFORMATION
  Report Type: Spontaneous
  Country: US (occurrence: US)
  Receive Date: 20190403
  Receipt Date: 20190403
  Transmission Date: 20190711
  Serious: No
  Sender: FDA-Public Use
  Company Number: None

PATIENT
  Age: 91 Year
  Sex: Female
  Weight: 65.25 kg

DRUGS (1)
  1. CIPRO [Suspect]
     Active Substance: CIPROFLOXACIN HYDROCHLORIDE
     Indication: DYSURIA

REACTIONS (4)
  - Nerve compression [None]
  - Abdominal discomfort [None]
  - Malaise [None]
  - Therapy non-responder [None]

NARRATIVE: CASE EVENT DATE: 20190228
